FAERS Safety Report 23260764 (Version 1)
Quarter: 2023Q4

REPORT INFORMATION
  Report Type: Other
  Country: US (occurrence: None)
  Receive Date: 20231205
  Receipt Date: 20231205
  Transmission Date: 20240109
  Serious: No
  Sender: FDA-Public Use
  Company Number: US-ROCHE-3467503

PATIENT
  Age: 57 Year
  Sex: Female
  Weight: 83.082 kg

DRUGS (2)
  1. OCREVUS [Suspect]
     Active Substance: OCRELIZUMAB
     Indication: Multiple sclerosis
     Dosage: 300MG, ON DAY 1 AND DAY 15, AND 600MG, EVERY 6 MONTHS, DATE OF TREATMENT = 11/JUL/2023, 06/FEB/2023,
     Route: 042
     Dates: start: 2020
  2. MODERNA COVID-19 VACCINE [Concomitant]
     Active Substance: ELASOMERAN

REACTIONS (1)
  - COVID-19 [Recovered/Resolved]

NARRATIVE: CASE EVENT DATE: 20220201
